FAERS Safety Report 8322739-8 (Version None)
Quarter: 2012Q2

REPORT INFORMATION
  Report Type: 
  Country: None (occurrence: None)
  Receive Date: 20120426
  Receipt Date: 20120412
  Transmission Date: 20120825
  Serious: Yes (Hospitalization)
  Sender: FDA-Public Use
  Company Number: JPI-P-020917

PATIENT
  Age: 47 Year
  Sex: Female
  Weight: 88.4514 kg

DRUGS (8)
  1. ZOLPIDEM TARTRATE [Suspect]
     Indication: SLEEP DISORDER
     Dosage: ORAL
     Route: 048
     Dates: start: 20120407, end: 20120411
  2. BACLOFEN [Concomitant]
  3. XYREM [Suspect]
     Indication: FIBROMYALGIA
     Dosage: SEE IMAGE
     Route: 048
     Dates: start: 20061031
  4. XYREM [Suspect]
     Indication: FIBROMYALGIA
     Dosage: SEE IMAGE
     Route: 048
     Dates: start: 20120411
  5. XYREM [Suspect]
     Indication: FIBROMYALGIA
     Dosage: SEE IMAGE
     Route: 048
     Dates: start: 20120208, end: 20120407
  6. PREGABALIN [Concomitant]
  7. OXYCODONE AND ACETAMINOPHEN [Concomitant]
  8. MILNACIPRAN HYDROCHLORIDE [Concomitant]

REACTIONS (3)
  - CONSTIPATION [None]
  - NIGHTMARE [None]
  - LARGE INTESTINE PERFORATION [None]
